FAERS Safety Report 13950973 (Version 1)
Quarter: 2017Q3

REPORT INFORMATION
  Report Type: Spontaneous
  Country: US (occurrence: US)
  Receive Date: 20170908
  Receipt Date: 20170908
  Transmission Date: 20171128
  Serious: No
  Sender: FDA-Public Use
  Company Number: US-ROCHE-1198461

PATIENT
  Sex: Female

DRUGS (1)
  1. RITUXAN [Suspect]
     Active Substance: RITUXIMAB
     Indication: SJOGREN^S SYNDROME
     Route: 065
     Dates: start: 200905

REACTIONS (9)
  - Sleep disorder [Unknown]
  - Movement disorder [Unknown]
  - Tremor [Unknown]
  - Nervousness [Unknown]
  - Palpitations [Recovering/Resolving]
  - Blood pressure increased [Unknown]
  - Joint swelling [Unknown]
  - Muscle tightness [Unknown]
  - Pain [Unknown]
